FAERS Safety Report 6703256-5 (Version None)
Quarter: 2010Q2

REPORT INFORMATION
  Report Type: 
  Country: None (occurrence: None)
  Receive Date: 20100430
  Receipt Date: 20100416
  Transmission Date: 20101027
  Serious: Yes (Hospitalization)
  Sender: FDA-Public Use
  Company Number: DK-RANBAXY-2009RR-28231

PATIENT
  Sex: Female
  Weight: 70 kg

DRUGS (2)
  1. SERTRALINE HCL [Suspect]
     Indication: DEPRESSED MOOD
     Dosage: 50 MG, QD
     Route: 048
     Dates: start: 20060815, end: 20061228
  2. SERTRALINE HCL [Suspect]
     Dosage: 100 MG, QD
     Route: 048
     Dates: start: 20060815, end: 20061228

REACTIONS (19)
  - AGGRESSION [None]
  - ALOPECIA [None]
  - APATHY [None]
  - BRAIN INJURY [None]
  - CONSTIPATION [None]
  - DRUG TOXICITY [None]
  - DRY MOUTH [None]
  - FALL [None]
  - HYPERHIDROSIS [None]
  - HYPERPARATHYROIDISM [None]
  - MANIA [None]
  - NEUROLOGICAL SYMPTOM [None]
  - PARESIS [None]
  - PARKINSONISM [None]
  - PERIODONTAL DISEASE [None]
  - QUALITY OF LIFE DECREASED [None]
  - RENAL IMPAIRMENT [None]
  - SEROTONIN SYNDROME [None]
  - WEIGHT INCREASED [None]
